FAERS Safety Report 14363286 (Version 1)
Quarter: 2018Q1

REPORT INFORMATION
  Report Type: Spontaneous
  Country: CN (occurrence: CN)
  Receive Date: 20180108
  Receipt Date: 20180108
  Transmission Date: 20180509
  Serious: Yes (Hospitalization, Other)
  Sender: FDA-Public Use
  Company Number: CN-PFIZER INC-2018004132

PATIENT
  Age: 54 Year
  Sex: Female
  Weight: 53 kg

DRUGS (3)
  1. EPIDAZA [Suspect]
     Active Substance: TUCIDINOSTAT
     Indication: CHEMOTHERAPY
     Dosage: 30 MG, TWICE A WEEK (BIW)
     Route: 048
     Dates: start: 20151130, end: 20160414
  2. AROMASIN [Suspect]
     Active Substance: EXEMESTANE
     Indication: CHEMOTHERAPY
     Dosage: 25 MG, ONCE A DAY (QD)
     Route: 048
     Dates: start: 20151130
  3. EPIDAZA [Suspect]
     Active Substance: TUCIDINOSTAT
     Dosage: 20 MG, TWICE A WEEK (BIW)
     Route: 048
     Dates: start: 20160415, end: 20171019

REACTIONS (3)
  - Liver injury [Recovering/Resolving]
  - Platelet count decreased [Unknown]
  - Respiratory tract infection [Unknown]

NARRATIVE: CASE EVENT DATE: 20151202
